FAERS Safety Report 4697518-3 (Version None)
Quarter: 2005Q2

REPORT INFORMATION
  Report Type: 
  Country: None (occurrence: None)
  Receive Date: 20050621
  Receipt Date: 20050607
  Transmission Date: 20051028
  Serious: Yes (Death)
  Sender: FDA-Public Use
  Company Number: USA050699871

PATIENT
  Age: 93 Year
  Sex: Female

DRUGS (6)
  1. SYMBYAX [Suspect]
     Indication: INSOMNIA
  2. LIBRIUM (CHLORODIAZEPOXIDE) [Concomitant]
  3. RESTORIL [Concomitant]
  4. PAXIL [Concomitant]
  5. ARICEPT [Concomitant]
  6. DOXEPIN HCL [Concomitant]

REACTIONS (1)
  - DEMENTIA ALZHEIMER'S TYPE [None]
